FAERS Safety Report 4448832-8 (Version None)
Quarter: 2004Q3

REPORT INFORMATION
  Report Type: 
  Country: None (occurrence: None)
  Receive Date: 20040909
  Receipt Date: 20040902
  Transmission Date: 20050211
  Serious: Yes (Death, Life-Threatening)
  Sender: FDA-Public Use
  Company Number: 2004-119916-NL

PATIENT
  Age: 90 Year
  Sex: Female

DRUGS (12)
  1. MIRTAZAPINE [Suspect]
     Dosage: DF ORAL
     Route: 048
     Dates: start: 20040708, end: 20040710
  2. SULPIRIDE [Suspect]
     Dosage: 50 MG ORAL
     Route: 048
     Dates: start: 20040616, end: 20040708
  3. METOCLOPRAMIDE [Suspect]
     Dosage: DF
     Dates: start: 20040622, end: 20040709
  4. DOXEPIN HYDROCHLORIDE [Suspect]
     Dosage: DF
     Dates: start: 20040623, end: 20040709
  5. OMEPRAZOLE [Suspect]
     Indication: GASTRITIS
     Dosage: DF
     Dates: start: 20040622, end: 20040712
  6. OMEPRAZOLE [Suspect]
     Indication: GASTRODUODENITIS
     Dosage: DF
     Dates: start: 20040622, end: 20040712
  7. CLOPIDOGREL BISULFATE [Suspect]
     Dosage: DF
     Dates: start: 20040616, end: 20040712
  8. MOLSIDOMINE [Concomitant]
  9. OXYBUTYNIN HYDROCHLORIDE [Concomitant]
  10. SMECTITE [Concomitant]
  11. METRONIDAZOLE [Concomitant]
  12. FERROUS FUMARATE [Concomitant]

REACTIONS (9)
  - ANXIETY [None]
  - COAGULOPATHY [None]
  - DEPRESSION [None]
  - GASTRITIS [None]
  - GENERAL PHYSICAL HEALTH DETERIORATION [None]
  - HEPATIC FAILURE [None]
  - HEPATITIS [None]
  - PAIN [None]
  - RENAL FAILURE ACUTE [None]
